FAERS Safety Report 16347172 (Version 1)
Quarter: 2019Q2

REPORT INFORMATION
  Report Type: Spontaneous
  Country: TR (occurrence: TR)
  Receive Date: 20190523
  Receipt Date: 20190523
  Transmission Date: 20190711
  Serious: Yes (Life-Threatening, Hospitalization, Other)
  Sender: FDA-Public Use
  Company Number: PHHY2019TR117626

PATIENT
  Sex: Female

DRUGS (5)
  1. DICLOFENAC SODIUM. [Suspect]
     Active Substance: DICLOFENAC SODIUM
     Indication: EAR PAIN
  2. RAMIPRIL. [Concomitant]
     Active Substance: RAMIPRIL
     Dosage: UNK
     Route: 065
  3. ASPIRIN. [Concomitant]
     Active Substance: ASPIRIN
     Dosage: 300 MG, UNK
     Route: 065
  4. DICLOFENAC SODIUM. [Suspect]
     Active Substance: DICLOFENAC SODIUM
     Indication: HEADACHE
     Dosage: UNK
     Route: 030
  5. ASPIRIN. [Concomitant]
     Active Substance: ASPIRIN
     Indication: PRODUCT USED FOR UNKNOWN INDICATION
     Dosage: UNK
     Route: 065

REACTIONS (17)
  - Peripheral coldness [Recovered/Resolved]
  - Atrioventricular block complete [Recovered/Resolved]
  - Chest pain [Recovered/Resolved]
  - Asthenia [Recovered/Resolved]
  - Disease recurrence [Recovered/Resolved]
  - White blood cell count increased [Recovered/Resolved]
  - Acute myocardial infarction [Recovered/Resolved]
  - Kounis syndrome [Recovered/Resolved]
  - Hypokinesia [Recovered/Resolved]
  - Eosinophilia [Recovered/Resolved]
  - Arteriospasm coronary [Recovered/Resolved]
  - Hyperhidrosis [Recovered/Resolved]
  - Cardiogenic shock [Recovered/Resolved]
  - Nausea [Recovered/Resolved]
  - Condition aggravated [Recovered/Resolved]
  - Hypersensitivity [Recovered/Resolved]
  - Troponin I increased [Recovered/Resolved]
